FAERS Safety Report 4840404-6 (Version None)
Quarter: 2005Q4

REPORT INFORMATION
  Report Type: 
  Country: None (occurrence: None)
  Receive Date: 20051024
  Receipt Date: 20050919
  Transmission Date: 20060501
  Serious: Yes (Hospitalization, Other)
  Sender: FDA-Public Use
  Company Number: 215883

PATIENT
  Age: 37 Year
  Sex: Female
  Weight: 78.9 kg

DRUGS (29)
  1. XOLAIR [Suspect]
     Indication: ASTHMA
     Dosage: 150 MG, 1/MONTH,SUBCUTANEOUS
     Route: 058
     Dates: start: 20050501, end: 20050705
  2. BENADRYL [Concomitant]
  3. ALBUTEROL INHALER (ALBUTEROL SULFATE, ALBUTEROL) [Concomitant]
  4. ADVAIR DISKUS (FLUTICASONE PROPIONATE, SALMETEROL XINAFOATE) [Concomitant]
  5. DITROPAN XL [Concomitant]
  6. ELMIRON [Concomitant]
  7. HCTZ (HYDROCHLOROTHIAZIDE) [Concomitant]
  8. HYDROXIZINE CHLORIDE (HYDROXYZINE HYDROCHLORIDE) [Concomitant]
  9. HYOSCYAMINE (HYOSCYAMINE) [Concomitant]
  10. OXYCODONE HCL + ACETAMINOPHEN (OXYCODONE HYDROCHLORIDE, ACETAMINOPHEN) [Concomitant]
  11. PREDNISONE [Concomitant]
  12. PREVACID [Concomitant]
  13. PROMETHEZINE HCL [Concomitant]
  14. SINGULAIR [Concomitant]
  15. SOMA [Concomitant]
  16. TIZANIDINE (TIZANIDINE HYDROCHLORIDE) [Concomitant]
  17. ULTRACET (ACETAMINOPHEN, TRAMADOL HYDROCHLORIDE) [Concomitant]
  18. VERAPAMIL [Concomitant]
  19. ZELNORM [Concomitant]
  20. ZOMIG [Concomitant]
  21. TYLENOL ARTHRITIS (ACETAMINOPHEN) [Concomitant]
  22. PERCOGESIC (ACETAMINOPHEN, PHENYLTOLOXAMINE) [Concomitant]
  23. QUININE SULFATE [Concomitant]
  24. MULTI-VITAMIN SUPPLEMENT (MULTIVITAMINS NOS) [Concomitant]
  25. GLUCOSAMINE/CHONDROITIN (GLUCOSAMINE, CHONDROITIN SULFATE) [Concomitant]
  26. CALCIUM + ZINC (CALCIUM NOS, ZINC NOS) [Concomitant]
  27. MAGNESIUM SULFATE [Concomitant]
  28. LORAZEPAM [Concomitant]
  29. PATANOL [Concomitant]

REACTIONS (3)
  - DYSPNOEA [None]
  - HYPERSENSITIVITY [None]
  - THROAT TIGHTNESS [None]
